FAERS Safety Report 6221525-2 (Version None)
Quarter: 2009Q2

REPORT INFORMATION
  Report Type: 
  Country: None (occurrence: None)
  Receive Date: 20090610
  Receipt Date: 20090601
  Transmission Date: 20091009
  Serious: Yes (Other)
  Sender: FDA-Public Use
  Company Number: PHEH2008US07414

PATIENT
  Sex: Female

DRUGS (1)
  1. ZOMETA [Suspect]

REACTIONS (33)
  - ANHEDONIA [None]
  - ANXIETY [None]
  - APHASIA [None]
  - ATAXIA [None]
  - AURICULAR SWELLING [None]
  - BREAST CANCER METASTATIC [None]
  - CONFUSIONAL STATE [None]
  - DIZZINESS [None]
  - DYSTHYMIC DISORDER [None]
  - FALL [None]
  - FLAT AFFECT [None]
  - GAIT DISTURBANCE [None]
  - HEADACHE [None]
  - HEPATIC CANCER METASTATIC [None]
  - HERPES SIMPLEX [None]
  - HYDROCEPHALUS [None]
  - HYPOACUSIS [None]
  - INJURY [None]
  - MAJOR DEPRESSION [None]
  - MEMORY IMPAIRMENT [None]
  - MENINGIOMA [None]
  - MENINGIOMA SURGERY [None]
  - MUSCLE DISORDER [None]
  - NAUSEA [None]
  - OSTEONECROSIS [None]
  - OSTEOSCLEROSIS [None]
  - PAIN [None]
  - PARTIAL SEIZURES [None]
  - RENAL FAILURE CHRONIC [None]
  - SECRETION DISCHARGE [None]
  - SUBDURAL HAEMATOMA [None]
  - VENTRICULO-PERITONEAL SHUNT [None]
  - VOMITING [None]
